FAERS Safety Report 5149802-7 (Version None)
Quarter: 2006Q4

REPORT INFORMATION
  Report Type: 
  Country: None (occurrence: None)
  Receive Date: 20061108
  Receipt Date: 20061031
  Transmission Date: 20070319
  Serious: Yes (Life-Threatening, Hospitalization)
  Sender: FDA-Public Use
  Company Number: 210009

PATIENT
  Age: 42 Year
  Sex: Female

DRUGS (12)
  1. XOLAIR [Suspect]
     Indication: ASTHMA
     Dosage: 150MG, Q4W
     Dates: start: 20040607, end: 20041026
  2. ALLEGRA [Concomitant]
  3. METFORMIN HCL [Concomitant]
  4. ZOCOR [Concomitant]
  5. PRILOSEC [Concomitant]
  6. PAXIL [Concomitant]
  7. ATIVAN [Concomitant]
  8. DOXEPIN (DOXEPIN HYDROCHLORIDE) [Concomitant]
  9. ADVAIR DISKUS 100/50 [Concomitant]
  10. LISINOPRIL [Concomitant]
  11. CLARITIN [Concomitant]
  12. INSULIN (INSULIN) [Concomitant]

REACTIONS (3)
  - ANAPHYLACTIC REACTION [None]
  - ASTHMA [None]
  - BLOOD GLUCOSE INCREASED [None]
